FAERS Safety Report 15136136 (Version 1)
Quarter: 2018Q3

REPORT INFORMATION
  Report Type: Spontaneous
  Country: US (occurrence: US)
  Receive Date: 20180617
  Receipt Date: 20180617
  Transmission Date: 20181010
  Serious: Yes (Hospitalization)
  Sender: FDA-Public Use
  Company Number: None

PATIENT
  Age: 71 Year
  Sex: Male

DRUGS (2)
  1. MIDAZOLAM [Suspect]
     Active Substance: MIDAZOLAM HYDROCHLORIDE
  2. FENTANYL. [Concomitant]
     Active Substance: FENTANYL

REACTIONS (5)
  - Facial paralysis [None]
  - Speech disorder [None]
  - Pruritus [None]
  - Hemiparesis [None]
  - Aphasia [None]
